FAERS Safety Report 5579960-1 (Version None)
Quarter: 2008Q1

REPORT INFORMATION
  Report Type: 
  Country: None (occurrence: None)
  Receive Date: 20080103
  Receipt Date: 20071226
  Transmission Date: 20080703
  Serious: Yes (Other)
  Sender: FDA-Public Use
  Company Number: PHBS2007JP15556

PATIENT

DRUGS (1)
  1. VOLTAREN [Suspect]
     Indication: ANALGESIC THERAPY
     Dosage: 25 MG/DAY
     Route: 054

REACTIONS (2)
  - BLOOD PRESSURE DECREASED [None]
  - SHOCK [None]
